FAERS Safety Report 23820692 (Version 1)
Quarter: 2024Q2

REPORT INFORMATION
  Report Type: Spontaneous
  Country: US (occurrence: None)
  Receive Date: 20240503
  Receipt Date: 20240503
  Transmission Date: 20240716
  Serious: Yes (Hospitalization)
  Sender: FDA-Public Use
  Company Number: None

PATIENT
  Age: 71 Year
  Sex: Male

DRUGS (1)
  1. SERTRALINE HYDROCHLORIDE [Suspect]
     Active Substance: SERTRALINE HYDROCHLORIDE
     Indication: Depression
     Dosage: 25 MG AT BEDTIME PO?
     Route: 048
     Dates: start: 20220415, end: 20220429

REACTIONS (4)
  - Vision blurred [None]
  - Dizziness [None]
  - Insomnia [None]
  - Visual impairment [None]

NARRATIVE: CASE EVENT DATE: 20220415
